FAERS Safety Report 17994991 (Version 1)
Quarter: 2020Q3

REPORT INFORMATION
  Report Type: Spontaneous
  Country: CN (occurrence: CN)
  Receive Date: 20200708
  Receipt Date: 20200708
  Transmission Date: 20201103
  Serious: Yes (Other)
  Sender: FDA-Public Use
  Company Number: CN-009507513-2007CHN001133

PATIENT
  Age: 69 Year
  Sex: Female

DRUGS (1)
  1. TEMOZOLOMIDE. [Suspect]
     Active Substance: TEMOZOLOMIDE
     Indication: METASTASES TO CENTRAL NERVOUS SYSTEM
     Dosage: 75 MILLIGRAM/SQ. METER DAILY
     Route: 048
     Dates: start: 201810, end: 201811

REACTIONS (2)
  - Myelosuppression [Unknown]
  - Product use in unapproved indication [Unknown]

NARRATIVE: CASE EVENT DATE: 2018
